FAERS Safety Report 4980472-4 (Version None)
Quarter: 2006Q2

REPORT INFORMATION
  Report Type: 
  Country: None (occurrence: None)
  Receive Date: 20060418
  Receipt Date: 20060406
  Transmission Date: 20061013
  Serious: Yes (Hospitalization, Other)
  Sender: FDA-Public Use
  Company Number: 2005157920

PATIENT
  Age: 65 Year
  Sex: Female

DRUGS (19)
  1. NEURONTIN [Suspect]
     Indication: NEUROPATHY
     Dosage: 100 MG (100 MG, 1 IN 1 D)
     Dates: start: 20050726, end: 20051009
  2. BEXTRA [Concomitant]
  3. ACTONEL [Concomitant]
  4. LIPITOR [Concomitant]
  5. NEXIUM [Concomitant]
  6. FLONASE [Concomitant]
  7. ADVAIR DISKUS 100/50 [Concomitant]
  8. PROVENTIL [Concomitant]
  9. CLARINEX [Concomitant]
  10. SINGULAR (MONTELUKAST SODIUM) [Concomitant]
  11. MUCINEX GUAIFENESIN) [Concomitant]
  12. ECOTRIN (ACETYLSALICYLIC ACID) [Concomitant]
  13. BLACK COHOSH (CIMICIFUGA RACEMOSA ROOT) [Concomitant]
  14. HERBAL PREPARATION (HERBAL PREPARATION) [Concomitant]
  15. ALL OTHER THERAPEUTIC PRODUCTS (ALL OTHER THERAPEUTIC PRODUCTS) [Concomitant]
  16. VITAMIN C (VITAMIN C) [Concomitant]
  17. OMEGA 3 (FISH OIL) [Concomitant]
  18. GLUCOSAMINE W/CHONDROITIN SULFATES (ASCORBIC ACID, CHONDROITIN SULFATE [Concomitant]
  19. CELEBREX [Concomitant]

REACTIONS (31)
  - ASTHMA [None]
  - BACK PAIN [None]
  - CEREBROVASCULAR DISORDER [None]
  - CONDITION AGGRAVATED [None]
  - CONFUSIONAL STATE [None]
  - CONVULSION [None]
  - DIFFICULTY IN WALKING [None]
  - DISTURBANCE IN ATTENTION [None]
  - DRUG DOSE OMISSION [None]
  - DRUG INTERACTION [None]
  - DRUG TOXICITY [None]
  - DYSPNOEA [None]
  - EYE PAIN [None]
  - FATIGUE [None]
  - FLUID RETENTION [None]
  - FREQUENT BOWEL MOVEMENTS [None]
  - GAIT DISTURBANCE [None]
  - GASTROOESOPHAGEAL REFLUX DISEASE [None]
  - INCONTINENCE [None]
  - MENIERE'S DISEASE [None]
  - MOVEMENT DISORDER [None]
  - NECK PAIN [None]
  - NEURALGIA [None]
  - PAIN [None]
  - PHOTOPHOBIA [None]
  - POLLAKIURIA [None]
  - PSYCHOSOMATIC DISEASE [None]
  - SOMNOLENCE [None]
  - STRESS [None]
  - TREMOR [None]
  - WEIGHT INCREASED [None]
